FAERS Safety Report 7703704-8 (Version None)
Quarter: 2011Q3

REPORT INFORMATION
  Report Type: 
  Country: None (occurrence: None)
  Receive Date: 20110823
  Receipt Date: 20110817
  Transmission Date: 20111222
  Serious: Yes (Hospitalization)
  Sender: FDA-Public Use
  Company Number: US-SANOFI-AVENTIS-2011SA052862

PATIENT
  Age: 59 Year
  Sex: Female

DRUGS (3)
  1. ALL OTHER THERAPEUTIC PRODUCTS [Concomitant]
  2. LANTUS [Suspect]
     Indication: TYPE 2 DIABETES MELLITUS
     Dosage: DOSE:24 UNIT(S)
     Route: 058
  3. SOLOSTAR [Suspect]
     Indication: TYPE 2 DIABETES MELLITUS

REACTIONS (3)
  - BLOOD GLUCOSE DECREASED [None]
  - RECTAL HAEMORRHAGE [None]
  - BLOOD GLUCOSE INCREASED [None]
